FAERS Safety Report 8961563 (Version 1)
Quarter: 2012Q4

REPORT INFORMATION
  Report Type: 
  Country: US (occurrence: US)
  Receive Date: 20121212
  Receipt Date: 20121212
  Transmission Date: 20130627
  Serious: No
  Sender: FDA-Public Use
  Company Number: US-ASTRAZENECA-2012SE51177

PATIENT
  Age: 65 Year
  Sex: Female

DRUGS (2)
  1. SYMBICORT PMDI [Suspect]
     Dosage: 80/4.5 MCG DAILY
     Route: 055
  2. PULMICORT FLEXHALER [Suspect]
     Dosage: UNKNOWN
     Route: 055

REACTIONS (4)
  - Lung infection [Unknown]
  - Dyspnoea [Unknown]
  - Drug dose omission [Unknown]
  - Drug ineffective [Unknown]
